FAERS Safety Report 4301351-1 (Version None)
Quarter: 2004Q1

REPORT INFORMATION
  Report Type: 
  Country: None (occurrence: None)
  Receive Date: 20040223
  Receipt Date: 20030424
  Transmission Date: 20041129
  Serious: Yes (Hospitalization, Other)
  Sender: FDA-Public Use
  Company Number: US-GLAXOSMITHKLINE-A0406226A

PATIENT
  Age: 76 Year
  Sex: Female
  Weight: 55.5 kg

DRUGS (2)
  1. NAVELBINE [Suspect]
     Dosage: 25MGM2 PER DAY
     Route: 042
     Dates: start: 20020604, end: 20030318
  2. HERCEPTIN [Concomitant]
     Dosage: 2MGM2 WEEKLY
     Route: 042
     Dates: start: 20020102, end: 20021022

REACTIONS (1)
  - CONSTIPATION [None]
